FAERS Safety Report 6337751-8 (Version None)
Quarter: 2009Q3

REPORT INFORMATION
  Report Type: 
  Country: None (occurrence: None)
  Receive Date: 20090902
  Receipt Date: 20090825
  Transmission Date: 20100115
  Serious: Yes (Death, Life-Threatening, Hospitalization)
  Sender: FDA-Public Use
  Company Number: AR-JNJFOC-20090808716

PATIENT
  Sex: Female

DRUGS (20)
  1. GOLIMUMAB [Suspect]
     Route: 058
  2. GOLIMUMAB [Suspect]
     Indication: RHEUMATOID ARTHRITIS
     Route: 058
  3. GOLIMUMAB [Suspect]
     Route: 042
  4. GOLIMUMAB [Suspect]
     Route: 042
  5. METHOTREXATE [Suspect]
     Route: 048
  6. METHOTREXATE [Suspect]
     Indication: RHEUMATOID ARTHRITIS
     Route: 048
  7. PLACEBO [Suspect]
     Route: 048
  8. PLACEBO [Suspect]
     Indication: RHEUMATOID ARTHRITIS
     Route: 048
  9. FOLIC ACID [Concomitant]
     Indication: PROPHYLAXIS
     Route: 048
  10. DICLOFENAC [Concomitant]
     Route: 048
  11. PREDNISONE [Concomitant]
     Route: 048
  12. ENALAPRIL MALEATE [Concomitant]
     Route: 048
  13. OMEPRAZOLE [Concomitant]
     Indication: PROPHYLAXIS
     Route: 048
  14. METHOTREXATE [Concomitant]
     Route: 048
  15. FERROUS SULFATE TAB [Concomitant]
     Route: 048
  16. MEPREDNISONE [Concomitant]
     Indication: RHEUMATOID ARTHRITIS
     Route: 048
  17. CLONAZEPAM [Concomitant]
     Route: 048
  18. PARACETAMOL [Concomitant]
     Route: 048
  19. IBUPROFEN [Concomitant]
     Route: 048
  20. DELTISONA [Concomitant]
     Indication: RHEUMATOID ARTHRITIS
     Route: 048

REACTIONS (1)
  - RESPIRATORY TRACT INFECTION [None]
